FAERS Safety Report 7341522-3 (Version None)
Quarter: 2011Q1

REPORT INFORMATION
  Report Type: 
  Country: None (occurrence: None)
  Receive Date: 20110301
  Receipt Date: 20110217
  Transmission Date: 20110831
  Serious: Yes (Death, Hospitalization)
  Sender: FDA-Public Use
  Company Number: 2011S1000068

PATIENT
  Age: 29 Year
  Sex: Male

DRUGS (5)
  1. INOMAX [Suspect]
     Indication: ACUTE RESPIRATORY DISTRESS SYNDROME
  2. INOVENT (DELIVERY SYSTEM) [Suspect]
     Indication: ACUTE RESPIRATORY DISTRESS SYNDROME
     Dosage: 20 PPM;CONT;INH ; 50 PPM;CONT;INH ; 60 PPM;CONT;INH ; 64 PPM;CONT;INH
     Route: 055
     Dates: start: 20110210, end: 20110211
  3. INOVENT (DELIVERY SYSTEM) [Suspect]
     Indication: ACUTE RESPIRATORY DISTRESS SYNDROME
     Dosage: 20 PPM;CONT;INH ; 50 PPM;CONT;INH ; 60 PPM;CONT;INH ; 64 PPM;CONT;INH
     Route: 055
     Dates: start: 20110211, end: 20110212
  4. INOVENT (DELIVERY SYSTEM) [Suspect]
     Indication: ACUTE RESPIRATORY DISTRESS SYNDROME
     Dosage: 20 PPM;CONT;INH ; 50 PPM;CONT;INH ; 60 PPM;CONT;INH ; 64 PPM;CONT;INH
     Route: 055
     Dates: start: 20110212, end: 20110213
  5. INOVENT (DELIVERY SYSTEM) [Suspect]
     Indication: ACUTE RESPIRATORY DISTRESS SYNDROME
     Dosage: 20 PPM;CONT;INH ; 50 PPM;CONT;INH ; 60 PPM;CONT;INH ; 64 PPM;CONT;INH
     Route: 055
     Dates: start: 20110209, end: 20110210

REACTIONS (3)
  - CARDIAC ARREST [None]
  - VENTRICULAR TACHYCARDIA [None]
  - HYPOTENSION [None]
